FAERS Safety Report 6921857-6 (Version None)
Quarter: 2010Q3

REPORT INFORMATION
  Report Type: 
  Country: None (occurrence: None)
  Receive Date: 20100806
  Receipt Date: 20100514
  Transmission Date: 20110219
  Serious: No
  Sender: FDA-Public Use
  Company Number: 2010-06736

PATIENT
  Age: 64 Year
  Sex: Male

DRUGS (2)
  1. RAPAFLO [Suspect]
     Indication: DYSURIA
     Dosage: 1 CAPSUL, QHS, ORAL
     Route: 048
     Dates: start: 20100510, end: 20100513
  2. CLINDAMYCIN [Suspect]
     Indication: PROPHYLAXIS
     Dosage: 1 CAPSUL, QID, ORAL
     Route: 048
     Dates: start: 20100510, end: 20100513

REACTIONS (1)
  - DIARRHOEA [None]
